FAERS Safety Report 8437986-4 (Version None)
Quarter: 2012Q2

REPORT INFORMATION
  Report Type: 
  Country: None (occurrence: None)
  Receive Date: 20120614
  Receipt Date: 20120528
  Transmission Date: 20120825
  Serious: Yes (Other)
  Sender: FDA-Public Use
  Company Number: US-AMGEN-USASP2012010955

PATIENT
  Age: 68 Year
  Sex: Female
  Weight: 54.422 kg

DRUGS (12)
  1. RESTORIL [Concomitant]
  2. PREMARIN [Concomitant]
     Dosage: 0.3 MG, UNK
     Route: 048
  3. TOPROL-XL [Concomitant]
     Dosage: 100 MG, QD
     Route: 048
  4. METOPROLOL TARTRATE [Concomitant]
     Dosage: 100 MG, QD
  5. VITAMIN D [Concomitant]
     Dosage: 800 IU, UNK
  6. TEMAZEPAM [Concomitant]
     Dosage: 15 MG, QHS
     Route: 048
  7. PROLIA [Suspect]
     Indication: OSTEOPOROSIS POSTMENOPAUSAL
     Route: 058
     Dates: start: 20101007
  8. CALCIUM [Concomitant]
     Dosage: 1000 MG, UNK
  9. PROLIA [Suspect]
     Route: 058
     Dates: start: 20101007
  10. PROLIA [Suspect]
     Route: 058
     Dates: start: 20101007
  11. SIMVASTATIN [Concomitant]
     Dosage: 40 MG, QHS
     Route: 048
  12. VALSARTAN [Concomitant]
     Dosage: UNK
     Route: 048

REACTIONS (4)
  - NECK PAIN [None]
  - PNEUMONIA [None]
  - BACK PAIN [None]
  - OSTEONECROSIS OF JAW [None]
